FAERS Safety Report 10983939 (Version 1)
Quarter: 2015Q2

REPORT INFORMATION
  Report Type: Spontaneous
  Country: GB (occurrence: None)
  Receive Date: 20150401
  Receipt Date: 20150401
  Transmission Date: 20150821
  Serious: No
  Sender: FDA-Public Use
  Company Number: GB-LHC-2015036

PATIENT
  Age: 63 Year
  Sex: Female

DRUGS (1)
  1. LIQUID MEDICAL OXYGEN (OXYGEN) (GAS FOR INHALATION) (VERUM) [Suspect]
     Active Substance: OXYGEN
     Indication: PRODUCT USED FOR UNKNOWN INDICATION

REACTIONS (3)
  - Erythema [None]
  - Blast injury [None]
  - Frostbite [None]

NARRATIVE: CASE EVENT DATE: 201204
